FAERS Safety Report 7190185-9 (Version None)
Quarter: 2010Q4

REPORT INFORMATION
  Report Type: 
  Country: None (occurrence: None)
  Receive Date: 20101223
  Receipt Date: 20101213
  Transmission Date: 20110411
  Serious: Yes (Hospitalization, Other)
  Sender: FDA-Public Use
  Company Number: GB-JNJFOC-20080605889

PATIENT
  Age: 6 Decade
  Sex: Female
  Weight: 48 kg

DRUGS (8)
  1. REMICADE [Suspect]
     Indication: RHEUMATOID ARTHRITIS
     Route: 042
  2. PREDNISOLONE [Concomitant]
  3. AMLODIPINE [Concomitant]
  4. CALCICHEW [Concomitant]
  5. FOSAMAX [Concomitant]
  6. CELEBREX [Concomitant]
  7. TRAMADOL [Concomitant]
  8. METHOTREXATE [Concomitant]

REACTIONS (1)
  - BREAST CANCER [None]
